FAERS Safety Report 25524396 (Version 1)
Quarter: 2025Q3

REPORT INFORMATION
  Report Type: Spontaneous
  Country: US (occurrence: None)
  Receive Date: 20250703
  Receipt Date: 20250703
  Transmission Date: 20251020
  Serious: Yes (Death, Life-Threatening, Hospitalization)
  Sender: FDA-CTU
  Company Number: None

PATIENT
  Age: 67 Year
  Sex: Female
  Weight: 60.6 kg

DRUGS (2)
  1. RUXOLITINIB [Suspect]
     Active Substance: RUXOLITINIB
     Indication: Haemophagocytic lymphohistiocytosis
     Dosage: FREQUENCY : TWICE A DAY;?
     Route: 048
     Dates: start: 20250603, end: 20250617
  2. Morphine 2 mg/hr [Concomitant]
     Dates: start: 20250623, end: 20250626

REACTIONS (8)
  - Generalised tonic-clonic seizure [None]
  - Dysphagia [None]
  - Aphasia [None]
  - Confusional state [None]
  - Seizure [None]
  - Unresponsive to stimuli [None]
  - Unresponsive to stimuli [None]
  - Electroencephalogram abnormal [None]

NARRATIVE: CASE EVENT DATE: 20250626
